FAERS Safety Report 7285360-9 (Version None)
Quarter: 2011Q1

REPORT INFORMATION
  Report Type: 
  Country: None (occurrence: None)
  Receive Date: 20110210
  Receipt Date: 20110131
  Transmission Date: 20110831
  Serious: Yes (Hospitalization)
  Sender: FDA-Public Use
  Company Number: JP-ROCHE-755408

PATIENT
  Sex: Female
  Weight: 4.1 kg

DRUGS (2)
  1. FLU VACCINATION [Concomitant]
     Dosage: NEW FLU VACCINATION
  2. OSELTAMIVIR [Suspect]
     Indication: INFLUENZA
     Dosage: ORAL FORMATION (NOT OTHERWISE SPECIFIED).
     Route: 064
     Dates: start: 20091121, end: 20091128

REACTIONS (2)
  - DRUG EXPOSURE DURING PREGNANCY [None]
  - JAUNDICE [None]
